FAERS Safety Report 6736477-6 (Version None)
Quarter: 2010Q2

REPORT INFORMATION
  Report Type: 
  Country: None (occurrence: None)
  Receive Date: 20100521
  Receipt Date: 20100517
  Transmission Date: 20101027
  Serious: Yes (Hospitalization, Other)
  Sender: FDA-Public Use
  Company Number: US-ELI_LILLY_AND_COMPANY-US201005004443

PATIENT
  Sex: Female

DRUGS (2)
  1. HUMALOG [Suspect]
     Dosage: UNK, AS NEEDED
     Route: 058
  2. HUMALOG [Suspect]
     Dosage: UNK, AS NEEDED
     Route: 058

REACTIONS (5)
  - BLINDNESS UNILATERAL [None]
  - CATARACT [None]
  - CATARACT OPERATION COMPLICATION [None]
  - INVESTIGATION [None]
  - MYOCARDIAL INFARCTION [None]
